FAERS Safety Report 8532320-3 (Version None)
Quarter: 2012Q3

REPORT INFORMATION
  Report Type: 
  Country: None (occurrence: None)
  Receive Date: 20120724
  Receipt Date: 20120716
  Transmission Date: 20120928
  Serious: Yes (Hospitalization)
  Sender: FDA-Public Use
  Company Number: US-BIOGENIDEC-2011BI028709

PATIENT
  Age: 57 Year
  Sex: Female

DRUGS (1)
  1. TYSABRI [Suspect]
     Indication: MULTIPLE SCLEROSIS
     Route: 042
     Dates: start: 20110607, end: 20111122

REACTIONS (5)
  - PNEUMONIA [None]
  - PAIN [None]
  - CHRONIC SINUSITIS [None]
  - SLEEP APNOEA SYNDROME [None]
  - BRONCHITIS CHRONIC [None]
